FAERS Safety Report 8647930 (Version 6)
Quarter: 2015Q3

REPORT INFORMATION
  Report Type: Spontaneous
  Country: CN (occurrence: CN)
  Receive Date: 20120703
  Receipt Date: 20150710
  Transmission Date: 20151125
  Serious: Yes (Death, Other)
  Sender: FDA-Public Use
  Company Number: CN-NAPPMUNDI-MAG-2012-0002213

PATIENT
  Age: 67 Year
  Sex: Male

DRUGS (6)
  1. TRAMADOL HCL [Suspect]
     Active Substance: TRAMADOL HYDROCHLORIDE
     Indication: PRODUCT USED FOR UNKNOWN INDICATION
     Dosage: 10 MG, DAILY
     Route: 048
     Dates: start: 20120615, end: 20120616
  2. VOLTAREN [Concomitant]
     Active Substance: DICLOFENAC SODIUM
     Indication: CANCER PAIN
     Route: 065
  3. MORPHINE SULFATE CR TABLET 30 MG [Suspect]
     Active Substance: MORPHINE SULFATE
     Dosage: 60 MG, UNK
     Route: 048
     Dates: end: 20120529
  4. MORPHINE SULFATE CR TABLET 30 MG [Suspect]
     Active Substance: MORPHINE SULFATE
     Dosage: 30 MG, DAILY
     Route: 048
     Dates: start: 20120527
  5. OXYCONTIN [Suspect]
     Active Substance: OXYCODONE HYDROCHLORIDE
     Indication: PRODUCT USED FOR UNKNOWN INDICATION
     Route: 065
  6. MORPHINE SULFATE CR TABLET 30 MG [Suspect]
     Active Substance: MORPHINE SULFATE
     Indication: CANCER PAIN
     Dosage: UNK
     Route: 048
     Dates: start: 201206

REACTIONS (4)
  - Chills [Recovered/Resolved]
  - Drug hypersensitivity [Unknown]
  - Malignant neoplasm progression [Fatal]
  - Hyperpyrexia [Recovered/Resolved]

NARRATIVE: CASE EVENT DATE: 20120527
